FAERS Safety Report 14903686 (Version 1)
Quarter: 2018Q2

REPORT INFORMATION
  Report Type: Spontaneous
  Country: DE (occurrence: DE)
  Receive Date: 20180516
  Receipt Date: 20180516
  Transmission Date: 20180711
  Serious: Yes (Other)
  Sender: FDA-Public Use
  Company Number: DE-MYLANLABS-2018M1031932

PATIENT
  Age: 43 Year
  Sex: Female
  Weight: 64 kg

DRUGS (19)
  1. FEMIGOA [Suspect]
     Active Substance: ETHINYL ESTRADIOL\LEVONORGESTREL
     Indication: OSTEOPENIA
  2. MARVELON [Suspect]
     Active Substance: DESOGESTREL\ETHINYL ESTRADIOL
     Indication: OSTEOPENIA
  3. VALSARTAN. [Concomitant]
     Active Substance: VALSARTAN
     Indication: HYPERTENSION
  4. VALETTE [Suspect]
     Active Substance: DIENOGEST\ETHINYL ESTRADIOL
     Indication: CONTRACEPTION
     Dosage: UNK
     Route: 048
  5. DIANE (CYPROTERONE ACETATE\ETHINYL ESTRADIOL) [Suspect]
     Active Substance: CYPROTERONE ACETATE\ETHINYL ESTRADIOL
     Indication: CONTRACEPTION
     Dosage: UNK
     Route: 048
     Dates: start: 19870822, end: 19930323
  6. CYCLOSA [Suspect]
     Active Substance: DESOGESTREL\ETHINYL ESTRADIOL
     Indication: CONTRACEPTION
     Dosage: UNK
     Route: 048
  7. VALSARTAN. [Concomitant]
     Active Substance: VALSARTAN
     Indication: HYPOVITAMINOSIS
     Dosage: DAILY DOSE: 160 MG MILLIGRAM(S) EVERY DAY
  8. CYPROTERONE/ETHINYLESTRADIOL [Suspect]
     Active Substance: CYPROTERONE ACETATE\ETHINYL ESTRADIOL
     Indication: ACNE
     Dosage: UNK
  9. DROSPIRENONE/ETHINYLESTRADIOL [Suspect]
     Active Substance: DROSPIRENONE\ETHINYL ESTRADIOL
     Indication: CONTRACEPTION
     Dosage: UNK
     Dates: start: 20160801, end: 20160801
  10. VITAMIN D                          /00107901/ [Concomitant]
     Active Substance: ERGOCALCIFEROL
     Indication: HYPOVITAMINOSIS
     Dosage: DOSED AS NEEDED
  11. FEMIGOA [Suspect]
     Active Substance: ETHINYL ESTRADIOL\LEVONORGESTREL
     Indication: CONTRACEPTION
     Dosage: UNK
     Route: 048
  12. DIANE (CYPROTERONE ACETATE\ETHINYL ESTRADIOL) [Suspect]
     Active Substance: CYPROTERONE ACETATE\ETHINYL ESTRADIOL
     Indication: OSTEOPENIA
  13. CYCLOSA [Suspect]
     Active Substance: DESOGESTREL\ETHINYL ESTRADIOL
     Indication: OSTEOPENIA
  14. VALETTE [Suspect]
     Active Substance: DIENOGEST\ETHINYL ESTRADIOL
     Indication: OSTEOPENIA
  15. MAXIM                              /01257001/ [Suspect]
     Active Substance: DIENOGEST\ETHINYL ESTRADIOL
     Indication: CONTRACEPTION
     Dosage: START DATE:03-AUG-2016- SEVERAL YEARS BEFORE CHOLECYSTECTOMY
     Route: 048
     Dates: start: 20160801, end: 20160801
  16. MARVELON [Suspect]
     Active Substance: DESOGESTREL\ETHINYL ESTRADIOL
     Indication: CONTRACEPTION
     Dosage: UNK
     Route: 048
  17. METOPROLOL. [Concomitant]
     Active Substance: METOPROLOL
     Indication: HYPERTENSION
     Dosage: ^DOSED 0.5-0-0^
  18. MOREA SANOL [Suspect]
     Active Substance: CYPROTERONE ACETATE\ETHINYL ESTRADIOL
     Indication: ACNE
     Dosage: UNK
  19. MARVELON [Suspect]
     Active Substance: DESOGESTREL\ETHINYL ESTRADIOL
     Indication: BLOOD PROLACTIN ABNORMAL

REACTIONS (4)
  - Cholecystectomy [Unknown]
  - Product use in unapproved indication [Unknown]
  - Focal nodular hyperplasia [Unknown]
  - Off label use [Unknown]

NARRATIVE: CASE EVENT DATE: 20110101
